FAERS Safety Report 4971717-5 (Version None)
Quarter: 2006Q2

REPORT INFORMATION
  Report Type: 
  Country: None (occurrence: None)
  Receive Date: 20060407
  Receipt Date: 20060327
  Transmission Date: 20061013
  Serious: Yes (Other)
  Sender: FDA-Public Use
  Company Number: 2006S1000032

PATIENT
  Age: 38 Year
  Sex: Male
  Weight: 80 kg

DRUGS (68)
  1. CUBICIN [Suspect]
     Indication: ENDOCARDITIS STAPHYLOCOCCAL
     Dosage: 4 MG/KG; Q48H; IV
     Route: 042
     Dates: start: 20060107, end: 20060117
  2. ALBUTEROL [Concomitant]
  3. ATROVENT [Concomitant]
  4. ATENOLOL [Concomitant]
  5. CYCLOSPORINE [Concomitant]
  6. PREDNISONE [Concomitant]
  7. CELLCEPT [Concomitant]
  8. LIPITOR [Concomitant]
  9. LASIX [Concomitant]
  10. PREVACID [Concomitant]
  11. GABAPENTIN [Concomitant]
  12. VECURONIUM BROMIDE [Concomitant]
  13. MIDAZOLAM HCL [Concomitant]
  14. FENTANYL [Concomitant]
  15. WARFARIN [Concomitant]
  16. LOVENOX [Concomitant]
  17. GENTAMICIN [Concomitant]
  18. RIFAMPIN [Concomitant]
  19. VANCOMYCIN [Concomitant]
  20. LEVAQUIN [Concomitant]
  21. ZOSYN [Concomitant]
  22. LORAZEPAM [Concomitant]
  23. ISOFLURANE [Concomitant]
  24. PROPOFOL [Concomitant]
  25. PANCURONIUM [Concomitant]
  26. PROTAMINE SULFATE [Concomitant]
  27. RISPERIDONE [Concomitant]
  28. PHYTONADIONE [Concomitant]
  29. PHYTONADIONE [Concomitant]
  30. MORPHINE SULFATE [Concomitant]
  31. METOPROLOL TARTRATE [Concomitant]
  32. METHYLPREDNISOLONE [Concomitant]
  33. MEPERIDINE [Concomitant]
  34. LISINOPRIL [Concomitant]
  35. HALOPERIDOL [Concomitant]
  36. ALPRAZOLAM [Concomitant]
  37. AMIODARONE HCL [Concomitant]
  38. AMLODIPINE [Concomitant]
  39. DIPHENOXYLATE [Concomitant]
  40. INSULIN [Concomitant]
  41. AMINOCAPROIC ACID [Concomitant]
  42. DILTIAZEM [Concomitant]
  43. NICARDIPINE [Concomitant]
  44. PHENYLEPHRINE [Concomitant]
  45. PHENYLEPHRINE [Concomitant]
  46. DILTIAZEM [Concomitant]
  47. ETOMIDATE [Concomitant]
  48. ETOMIDATE [Concomitant]
  49. DIPHENHYDRAMINE HCL [Concomitant]
  50. LORAZEPAM [Concomitant]
  51. AMIODARONE HCL [Concomitant]
  52. ASPIRIN [Concomitant]
  53. PROPOFOL [Concomitant]
  54. PROPOFOL [Concomitant]
  55. HYDROCORTISONE [Concomitant]
  56. HYDROCORTISONE [Concomitant]
  57. PROMETHAZINE [Concomitant]
  58. MEROPENEM [Concomitant]
  59. DARBEPOETIN ALPHA [Concomitant]
  60. ACETAMINOPHEN [Concomitant]
  61. PREDNISONE [Concomitant]
  62. PREDNISONE [Concomitant]
  63. RIFAMPIN [Concomitant]
  64. DARBEPOETIN ALPHA [Concomitant]
  65. DARBEPOETIN ALPHA [Concomitant]
  66. CELLCEPT [Concomitant]
  67. CYCLOSPORINE [Concomitant]
  68. PREDNISONE [Concomitant]

REACTIONS (14)
  - AORTIC VALVE DISEASE [None]
  - CARDIAC FAILURE CONGESTIVE [None]
  - CARDIAC VALVE DISEASE [None]
  - CEREBRAL ARTERY EMBOLISM [None]
  - CEREBRAL INFARCTION [None]
  - COMA [None]
  - DIALYSIS [None]
  - KIDNEY TRANSPLANT REJECTION [None]
  - LEUKAEMOID REACTION [None]
  - POST PROCEDURAL COMPLICATION [None]
  - PSEUDOBULBAR PALSY [None]
  - PYREXIA [None]
  - RENAL IMPAIRMENT [None]
  - SEPSIS [None]
